FAERS Safety Report 19176941 (Version 5)
Quarter: 2021Q3

REPORT INFORMATION
  Report Type: Report from Study
  Country: US (occurrence: US)
  Receive Date: 20210424
  Receipt Date: 20210924
  Transmission Date: 20211014
  Serious: No
  Sender: FDA-Public Use
  Company Number: NVSC2021US092398

PATIENT
  Age: 64 Year
  Sex: Male

DRUGS (3)
  1. KESIMPTA [Suspect]
     Active Substance: OFATUMUMAB
     Indication: MULTIPLE SCLEROSIS
     Dosage: 20 MG, QW
     Route: 058
     Dates: start: 20210420
  2. KESIMPTA [Suspect]
     Active Substance: OFATUMUMAB
     Dosage: 20 MG, QMO
     Route: 058
     Dates: start: 20210421
  3. KESIMPTA [Suspect]
     Active Substance: OFATUMUMAB
     Indication: RELAPSING MULTIPLE SCLEROSIS
     Dosage: 20 MG, QMO
     Route: 058
     Dates: start: 20210423

REACTIONS (14)
  - Cough [Recovering/Resolving]
  - Chest discomfort [Recovering/Resolving]
  - Confusional state [Not Recovered/Not Resolved]
  - SARS-CoV-2 test [Recovering/Resolving]
  - Fatigue [Recovered/Resolved]
  - Blood glucose increased [Not Recovered/Not Resolved]
  - Pyrexia [Recovering/Resolving]
  - Tremor [Not Recovered/Not Resolved]
  - Chills [Recovered/Resolved]
  - Sinusitis [Not Recovered/Not Resolved]
  - Oropharyngeal pain [Unknown]
  - Feeling abnormal [Recovering/Resolving]
  - Headache [Recovered/Resolved]
  - Nausea [Recovered/Resolved]

NARRATIVE: CASE EVENT DATE: 20210420
